FAERS Safety Report 7989224-4 (Version None)
Quarter: 2011Q4

REPORT INFORMATION
  Report Type: 
  Country: None (occurrence: None)
  Receive Date: 20111216
  Receipt Date: 20111216
  Transmission Date: 20120403
  Serious: Yes (Disabling, Other)
  Sender: FDA-Public Use
  Company Number: None

PATIENT
  Sex: Female
  Weight: 49.8957 kg

DRUGS (4)
  1. OXISTAT [Suspect]
     Dosage: COVER FOOT TWICE DAILY
     Dates: start: 20110930
  2. OXISTAT [Suspect]
     Dosage: COVER FOOT TWICE DAILY
     Dates: start: 20110929, end: 20111001
  3. NAFTIN [Suspect]
     Indication: FUNGAL INFECTION
     Dosage: COVER FOOT TWICE DAILY
     Dates: start: 20111001
  4. NAFTIN [Suspect]
     Indication: FUNGAL INFECTION
     Dosage: COVER FOOT TWICE DAILY
     Dates: start: 20110929, end: 20111001

REACTIONS (5)
  - BURNING SENSATION [None]
  - RASH [None]
  - SWELLING [None]
  - PRURITUS [None]
  - BLISTER [None]
